FAERS Safety Report 7597257-5 (Version None)
Quarter: 2011Q3

REPORT INFORMATION
  Report Type: 
  Country: None (occurrence: None)
  Receive Date: 20110708
  Receipt Date: 20110103
  Transmission Date: 20111222
  Serious: No
  Sender: FDA-Public Use
  Company Number: US-GLAXOSMITHKLINE-A0903731A

PATIENT
  Age: 61 Year
  Sex: Female

DRUGS (1)
  1. FLOVENT [Suspect]
     Indication: CHRONIC OBSTRUCTIVE PULMONARY DISEASE
     Dosage: 110MCG UNKNOWN
     Route: 055
     Dates: start: 20100101

REACTIONS (3)
  - PARAESTHESIA [None]
  - FEELING ABNORMAL [None]
  - MUSCLE DISORDER [None]
